FAERS Safety Report 8369157-4 (Version None)
Quarter: 2012Q2

REPORT INFORMATION
  Report Type: 
  Country: None (occurrence: None)
  Receive Date: 20120518
  Receipt Date: 20120515
  Transmission Date: 20120825
  Serious: Yes (Death)
  Sender: FDA-Public Use
  Company Number: FR-BAYER-2012-047353

PATIENT
  Age: 59 Year
  Sex: Female

DRUGS (1)
  1. SORAFENIB (RAF KINASE INHIBITOR) [Suspect]
     Dosage: DAILY DOSE 800 MG
     Dates: start: 20120110, end: 20120207

REACTIONS (6)
  - SUBDIAPHRAGMATIC ABSCESS [None]
  - SEPTIC SHOCK [None]
  - STAPHYLOCOCCAL SEPSIS [None]
  - CEREBROVASCULAR ACCIDENT [None]
  - ENDOCARDITIS [None]
  - DEVICE RELATED INFECTION [None]
